FAERS Safety Report 22225912 (Version 4)
Quarter: 2023Q2

REPORT INFORMATION
  Report Type: Spontaneous
  Country: VN (occurrence: VN)
  Receive Date: 20230419
  Receipt Date: 20230612
  Transmission Date: 20230721
  Serious: Yes (Other)
  Sender: FDA-Public Use
  Company Number: VN-BEH-2023157515

PATIENT
  Age: 8 Year
  Sex: Male
  Weight: 29 kg

DRUGS (1)
  1. PRIVIGEN [Suspect]
     Active Substance: HUMAN IMMUNOGLOBULIN G
     Indication: Encephalitis autoimmune
     Dosage: 50 MILLILITER
     Route: 042
     Dates: start: 202303, end: 20230411

REACTIONS (5)
  - Drug ineffective for unapproved indication [Unknown]
  - No adverse event [Unknown]
  - Off label use [Unknown]
  - Suspected counterfeit product [Unknown]
  - Cerebral atrophy [Unknown]

NARRATIVE: CASE EVENT DATE: 20230101
